FAERS Safety Report 8986778 (Version 2)
Quarter: 2013Q1

REPORT INFORMATION
  Report Type: Spontaneous
  Country: BR (occurrence: BR)
  Receive Date: 20121227
  Receipt Date: 20130104
  Transmission Date: 20140127
  Serious: Yes (Other)
  Sender: FDA-Public Use
  Company Number: PHHY2012BR119893

PATIENT
  Sex: Female

DRUGS (1)
  1. MIACALCIC [Suspect]
     Dosage: UNK UKN, UNK

REACTIONS (1)
  - Atrophy [Not Recovered/Not Resolved]
